FAERS Safety Report 12375630 (Version 1)
Quarter: 2016Q2

REPORT INFORMATION
  Report Type: Spontaneous
  Country: BR (occurrence: BR)
  Receive Date: 20160517
  Receipt Date: 20160517
  Transmission Date: 20160815
  Serious: Yes (Congenital Anomaly, Other)
  Sender: FDA-Public Use
  Company Number: BR-IMPAX LABORATORIES, INC-2016-IPXL-00503

PATIENT
  Sex: Male
  Weight: 3 kg

DRUGS (3)
  1. MISOPROSTOL. [Suspect]
     Active Substance: MISOPROSTOL
     Indication: PRODUCT USED FOR UNKNOWN INDICATION
     Dosage: UNK
     Route: 064
  2. DIVALPROEX SODIUM ER [Suspect]
     Active Substance: DIVALPROEX SODIUM
     Indication: PRODUCT USED FOR UNKNOWN INDICATION
     Dosage: UNK
     Route: 064
  3. CARBAMAZEPINE. [Suspect]
     Active Substance: CARBAMAZEPINE
     Indication: PRODUCT USED FOR UNKNOWN INDICATION
     Dosage: UNK
     Route: 064

REACTIONS (10)
  - Haemangioma [Unknown]
  - Foetal exposure during pregnancy [Unknown]
  - Arachnoid cyst [Unknown]
  - Meningocele [Unknown]
  - Varicella [Unknown]
  - Cerebellar hypoplasia [Unknown]
  - Congenital cystic lung [Unknown]
  - Hypermetropia [Unknown]
  - Astigmatism [Unknown]
  - Micrognathia [Unknown]
